FAERS Safety Report 6410180-4 (Version None)
Quarter: 2009Q4

REPORT INFORMATION
  Report Type: 
  Country: None (occurrence: None)
  Receive Date: 20091022
  Receipt Date: 20091013
  Transmission Date: 20100525
  Serious: Yes (Other)
  Sender: FDA-Public Use
  Company Number: US-ASTRAZENECA-2009SE19709

PATIENT
  Age: 74 Year
  Sex: Female
  Weight: 55.3 kg

DRUGS (6)
  1. CRESTOR [Suspect]
     Indication: BLOOD CHOLESTEROL INCREASED
     Route: 048
     Dates: start: 20090501
  2. CRESTOR [Suspect]
     Route: 048
  3. CITRACAL [Concomitant]
     Indication: BONE DISORDER
     Route: 048
  4. PEPCID [Concomitant]
     Indication: DYSPEPSIA
     Route: 048
  5. ASPIRIN [Concomitant]
     Indication: PAIN
     Dosage: 325 MG TO 650 MG
     Route: 048
  6. VITAMIN D [Concomitant]
     Indication: VITAMIN SUPPLEMENTATION
     Dosage: FREQUENCY- DAILY
     Route: 048

REACTIONS (4)
  - ARTHRALGIA [None]
  - MYALGIA [None]
  - SPINAL FUSION SURGERY [None]
  - WRONG TECHNIQUE IN DRUG USAGE PROCESS [None]
